FAERS Safety Report 12398357 (Version 1)
Quarter: 2016Q2

REPORT INFORMATION
  Report Type: Spontaneous
  Country: None (occurrence: None)
  Receive Date: 20160523
  Receipt Date: 20160523
  Transmission Date: 20160815
  Serious: No
  Sender: FDA-Public Use
  Company Number: None

PATIENT
  Age: 28 Year
  Sex: Female

DRUGS (1)
  1. DESOGEST-EE, .15-.02/EE .01 [Suspect]
     Active Substance: DESOGESTREL\ETHINYL ESTRADIOL
     Indication: MIGRAINE WITH AURA

REACTIONS (1)
  - Drug ineffective [None]

NARRATIVE: CASE EVENT DATE: 20160301
